FAERS Safety Report 8982161 (Version 1)
Quarter: 2012Q4

REPORT INFORMATION
  Report Type: 
  Country: US (occurrence: US)
  Receive Date: 20121222
  Receipt Date: 20121222
  Transmission Date: 20130627
  Serious: No
  Sender: FDA-Public Use
  Company Number: US-ASTRAZENECA-2012SE89492

PATIENT
  Age: 63 Year
  Sex: Female
  Weight: 108.9 kg

DRUGS (10)
  1. ARIMIDEX [Suspect]
     Route: 048
  2. ARIMIDEX [Suspect]
     Dosage: GENERIC
     Route: 048
     Dates: end: 20121023
  3. VIMOVO [Suspect]
     Route: 048
  4. OMEPRAZOLE [Suspect]
     Route: 048
  5. LEVEMIR [Concomitant]
     Indication: DIABETES MELLITUS
  6. NOVOLOG [Concomitant]
     Indication: DIABETES MELLITUS
  7. LEXAPRO [Concomitant]
  8. LEVOXYL [Concomitant]
     Indication: HYPOTHYROIDISM
  9. VITAMIN D [Concomitant]
  10. CALCIUM [Concomitant]

REACTIONS (4)
  - Gait disturbance [Recovering/Resolving]
  - Sleep disorder due to a general medical condition [Recovering/Resolving]
  - Arthralgia [Recovering/Resolving]
  - Arthralgia [Recovering/Resolving]
